FAERS Safety Report 10137115 (Version 1)
Quarter: 2014Q2

REPORT INFORMATION
  Report Type: Spontaneous
  Country: US (occurrence: US)
  Receive Date: 20140429
  Receipt Date: 20140429
  Transmission Date: 20141212
  Serious: Yes (Hospitalization)
  Sender: FDA-Public Use
  Company Number: US-MALLINCKRODT-T201401966

PATIENT
  Age: 67 Year
  Sex: Female
  Weight: 75 kg

DRUGS (29)
  1. METHADONE [Suspect]
     Indication: BACK PAIN
     Dosage: 10 MG, TID
     Route: 048
  2. METHADONE [Suspect]
     Indication: CANCER PAIN
     Dosage: 20 MG, TID
     Route: 048
  3. MORPHINE [Suspect]
     Indication: BACK PAIN
     Dosage: 125 MG/H, CONTINUOUS
     Route: 042
  4. MORPHINE [Suspect]
     Indication: CANCER PAIN
     Dosage: 44 MG/H, CONTINUOUS
     Route: 042
  5. MORPHINE [Suspect]
     Dosage: 10 MG, BOLUS, Q 30 MIN, PRN
     Route: 042
  6. FENTANYL [Suspect]
     Indication: CANCER PAIN
     Dosage: 100 UG, UNK
     Route: 042
  7. FENTANYL [Suspect]
     Indication: ANAESTHESIA
     Dosage: 200 UG, UNK
     Route: 042
  8. METHADONE [Suspect]
     Indication: CANCER PAIN
     Dosage: 10 MG/ML, 20 MG BOLUS, Q 15 MIN
     Route: 042
  9. METHADONE [Suspect]
     Dosage: 10 MG/H, CONTINUOUS
     Route: 042
  10. METHADONE [Suspect]
     Dosage: 25 MG Q 15 MIN
     Route: 042
  11. METHADONE [Suspect]
     Dosage: 20 MG/H, CONTINUOUS
     Route: 042
  12. SUFENTANIL [Suspect]
     Indication: GENERAL ANAESTHESIA
     Dosage: 500 UG, UNK
     Route: 065
  13. SUFENTANIL [Suspect]
     Dosage: 3.5 TO 9 MG/H (TOTAL DOSE 19 MG)
     Route: 065
  14. CLONAZEPAM [Concomitant]
     Dosage: 0.5 MG, BID
     Route: 048
  15. CLONIDINE [Concomitant]
     Indication: GENERAL ANAESTHESIA
     Dosage: 0.1 MG, UNK
     Route: 048
  16. CLONIDINE [Concomitant]
     Dosage: 200 UG, UNK
  17. AMITRIPTYLINE [Concomitant]
     Dosage: 50 MG, QD
     Route: 048
  18. GABAPENTIN [Concomitant]
     Dosage: 300 MG, 5 XQD, (1.500 MG/D)
     Route: 048
  19. PHENYTOIN [Concomitant]
     Dosage: 100 MG, UNK
     Route: 048
  20. DEXAMETHASONE [Concomitant]
     Dosage: 4 MG, UNK
  21. CLONIDINE TTS [Concomitant]
     Indication: PREMEDICATION
     Dosage: 100 UG
  22. MIDAZOLAM [Concomitant]
     Indication: PREMEDICATION
     Dosage: 2 MG, UNK
     Route: 042
  23. PROPOFOL [Concomitant]
     Indication: GENERAL ANAESTHESIA
     Dosage: 170 MG, UNK
  24. PROPOFOL [Concomitant]
     Dosage: 60 TO 90 UG/(KG MIN)
  25. ROCURONIUM [Concomitant]
     Indication: GENERAL ANAESTHESIA
     Dosage: 50 MG, UNK
  26. ISOFLURANE [Concomitant]
     Indication: ANAESTHESIA
     Dosage: UNK
  27. KETAMINE [Concomitant]
     Indication: ANAESTHESIA
     Dosage: 1,200 MG, TOTAL DOSE
  28. LACTATED RINGER^S [Concomitant]
     Dosage: 6 L, SINGLE
  29. HETASTARCH [Concomitant]
     Dosage: 1 L

REACTIONS (1)
  - Hyperaesthesia [Recovered/Resolved]
